FAERS Safety Report 8453958-8 (Version None)
Quarter: 2012Q2

REPORT INFORMATION
  Report Type: 
  Country: None (occurrence: None)
  Receive Date: 20120323
  Receipt Date: 20111013
  Transmission Date: 20120825
  Serious: Yes (Life-Threatening, Hospitalization, Disabling, Other)
  Sender: FDA-Public Use
  Company Number: 163-21880-11092039

PATIENT
  Age: 76 Year
  Sex: Female

DRUGS (8)
  1. ZOCOR [Concomitant]
  2. RAMIPRIL [Concomitant]
  3. REVLIMID [Suspect]
     Indication: MYELODYSPLASTIC SYNDROME
     Dosage: 5 MG, 1 IN 1 D, PO
     Route: 048
     Dates: start: 20110308, end: 20110728
  4. AMIODARONE HYDROCHLORIDE [Concomitant]
  5. PLAVIX [Concomitant]
  6. MEGACE [Concomitant]
  7. ASPIRIN [Concomitant]
  8. DANAZOL [Concomitant]

REACTIONS (6)
  - MYOCARDIAL INFARCTION [None]
  - ANAEMIA [None]
  - THROMBOCYTOPENIA [None]
  - CHEST PAIN [None]
  - DYSPNOEA [None]
  - HAEMORRHAGE [None]
